FAERS Safety Report 9271751 (Version 1)
Quarter: 2013Q2

REPORT INFORMATION
  Report Type: Spontaneous
  Country: IT (occurrence: IT)
  Receive Date: 20130506
  Receipt Date: 20130506
  Transmission Date: 20140414
  Serious: Yes (Hospitalization)
  Sender: FDA-Public Use
  Company Number: IT-JNJFOC-20130413956

PATIENT
  Age: 82 Year
  Sex: Female

DRUGS (3)
  1. HALDOL DECANOAS [Suspect]
     Indication: MAJOR DEPRESSION
     Route: 030
     Dates: start: 20121115
  2. SERENASE [Suspect]
     Indication: MAJOR DEPRESSION
     Route: 048
     Dates: start: 20121119, end: 20121127
  3. TALOFEN [Suspect]
     Indication: MAJOR DEPRESSION
     Route: 048
     Dates: start: 20121119, end: 20121127

REACTIONS (5)
  - Hyperpyrexia [Recovered/Resolved with Sequelae]
  - Hyperthermia [Recovered/Resolved with Sequelae]
  - Hypertonia [Recovered/Resolved with Sequelae]
  - Tremor [Recovered/Resolved with Sequelae]
  - Serotonin syndrome [Recovered/Resolved with Sequelae]
